FAERS Safety Report 24782986 (Version 1)
Quarter: 2024Q4

REPORT INFORMATION
  Report Type: Spontaneous
  Country: CN (occurrence: CN)
  Receive Date: 20241227
  Receipt Date: 20241227
  Transmission Date: 20250115
  Serious: Yes (Other)
  Sender: RANBAXY
  Company Number: CN-SUN PHARMACEUTICAL INDUSTRIES LTD-2024R1-481359

PATIENT
  Age: 20 Year
  Sex: Female

DRUGS (2)
  1. LITHIUM [Suspect]
     Active Substance: LITHIUM
     Indication: Bipolar disorder
     Dosage: 900 MILLIGRAM, DAILY
     Route: 065
  2. LITHIUM [Suspect]
     Active Substance: LITHIUM
     Dosage: 1800 MILLIGRAM, DAILY
     Route: 065

REACTIONS (6)
  - Arrhythmia [Recovering/Resolving]
  - Altered state of consciousness [Recovering/Resolving]
  - Overdose [Unknown]
  - Shock [Recovering/Resolving]
  - Toxicity to various agents [Unknown]
  - Tremor [Recovering/Resolving]
